FAERS Safety Report 19101488 (Version 1)
Quarter: 2021Q2

REPORT INFORMATION
  Report Type: Spontaneous
  Country: US (occurrence: US)
  Receive Date: 20210406
  Receipt Date: 20210406
  Transmission Date: 20210717
  Serious: No
  Sender: FDA-Public Use
  Company Number: None

PATIENT
  Age: 89 Year
  Sex: Male
  Weight: 144 kg

DRUGS (22)
  1. AMITIZA [Concomitant]
     Active Substance: LUBIPROSTONE
  2. ATORVASTATIN [Concomitant]
     Active Substance: ATORVASTATIN
  3. BUPROPRION [Concomitant]
     Active Substance: BUPROPION
  4. FLONASE [Concomitant]
     Active Substance: FLUTICASONE PROPIONATE
  5. CEFDINIR. [Concomitant]
     Active Substance: CEFDINIR
  6. CLINDAMYCIN. [Concomitant]
     Active Substance: CLINDAMYCIN
  7. CLOPIDOGREL [Concomitant]
     Active Substance: CLOPIDOGREL BISULFATE
  8. DIAZEPAM. [Concomitant]
     Active Substance: DIAZEPAM
  9. FENTANYL. [Concomitant]
     Active Substance: FENTANYL
  10. ACYCLOVIR. [Concomitant]
     Active Substance: ACYCLOVIR
  11. METOPROLOL. [Concomitant]
     Active Substance: METOPROLOL
  12. MULTIVITAMIN [Concomitant]
     Active Substance: VITAMINS
  13. OFLOXACIN. [Concomitant]
     Active Substance: OFLOXACIN
  14. OLOPATADINE. [Concomitant]
     Active Substance: OLOPATADINE
  15. DEXAMETHASONE. [Concomitant]
     Active Substance: DEXAMETHASONE
  16. CETIRIZINE [Concomitant]
     Active Substance: CETIRIZINE HYDROCHLORIDE
  17. BENADRYL [Concomitant]
     Active Substance: DIPHENHYDRAMINE HYDROCHLORIDE
  18. FUROSEMIDE. [Concomitant]
     Active Substance: FUROSEMIDE
  19. OMEPRAZOLE. [Concomitant]
     Active Substance: OMEPRAZOLE
  20. CYCLOPHOSPHAMIDE. [Suspect]
     Active Substance: CYCLOPHOSPHAMIDE
     Indication: PLASMA CELL MYELOMA
     Dosage: ?          OTHER FREQUENCY:WEEKLY;?
     Route: 048
  21. FENOFIBRATE. [Concomitant]
     Active Substance: FENOFIBRATE
  22. ONDANSETRON [Concomitant]
     Active Substance: ONDANSETRON

REACTIONS (1)
  - Stent placement [None]

NARRATIVE: CASE EVENT DATE: 20210406
